FAERS Safety Report 5285378-1 (Version None)
Quarter: 2007Q2

REPORT INFORMATION
  Report Type: 
  Country: None (occurrence: None)
  Receive Date: 20070403
  Receipt Date: 20070322
  Transmission Date: 20071010
  Serious: Yes (Hospitalization)
  Sender: FDA-Public Use
  Company Number: FR-PFIZER INC-2007024554

PATIENT
  Sex: Female

DRUGS (4)
  1. ATARAX [Suspect]
     Indication: ARTERIOGRAM
     Dosage: TEXT:100 MG/50 MG
     Route: 048
     Dates: start: 20070219, end: 20070219
  2. ATARAX [Suspect]
     Dates: start: 20070222, end: 20070222
  3. POVIDONE IODINE [Suspect]
     Indication: ARTERIOGRAM
     Dosage: TEXT:1 DF-FREQ:ONCE
     Route: 061
     Dates: start: 20070219, end: 20070219
  4. BENFLUOREX HYDROCHLORIDE [Concomitant]

REACTIONS (4)
  - DERMATITIS BULLOUS [None]
  - FIXED ERUPTION [None]
  - ORAL MUCOSAL ERUPTION [None]
  - PRURITUS [None]
